FAERS Safety Report 16551817 (Version 1)
Quarter: 2019Q3

REPORT INFORMATION
  Report Type: Spontaneous
  Country: DE (occurrence: DE)
  Receive Date: 20190710
  Receipt Date: 20190710
  Transmission Date: 20191004
  Serious: Yes (Other)
  Sender: FDA-Public Use
  Company Number: DE-PFIZER INC-2019290994

PATIENT
  Age: 54 Year
  Sex: Female

DRUGS (1)
  1. IBRANCE [Suspect]
     Active Substance: PALBOCICLIB
     Indication: BREAST CANCER
     Dosage: 125 MG, UNK
     Dates: start: 20190703

REACTIONS (4)
  - Visual impairment [Unknown]
  - Photophobia [Unknown]
  - Blood pressure increased [Unknown]
  - Aphasia [Unknown]

NARRATIVE: CASE EVENT DATE: 20190704
